FAERS Safety Report 17316304 (Version 1)
Quarter: 2020Q1

REPORT INFORMATION
  Report Type: Spontaneous
  Country: CN (occurrence: CN)
  Receive Date: 20200124
  Receipt Date: 20200124
  Transmission Date: 20200409
  Serious: Yes (Hospitalization, Other)
  Sender: FDA-Public Use
  Company Number: CN-ASTRAZENECA-2020SE09998

PATIENT
  Age: 24852 Day
  Sex: Male

DRUGS (5)
  1. TIROFIBAN HYDROCHLORIDE. [Suspect]
     Active Substance: TIROFIBAN HYDROCHLORIDE
     Indication: ANTIPLATELET THERAPY
     Route: 041
     Dates: start: 20200103, end: 20200103
  2. TICAGRELOR. [Suspect]
     Active Substance: TICAGRELOR
     Indication: ANTIPLATELET THERAPY
     Route: 048
     Dates: start: 20200103, end: 20200103
  3. TICAGRELOR. [Suspect]
     Active Substance: TICAGRELOR
     Indication: ANTIPLATELET THERAPY
     Route: 048
  4. ASPIRIN. [Suspect]
     Active Substance: ASPIRIN
     Indication: ANTIPLATELET THERAPY
     Route: 048
     Dates: start: 20200103, end: 20200103
  5. SODIUM CHLORIDE. [Suspect]
     Active Substance: SODIUM CHLORIDE
     Indication: ANTIPLATELET THERAPY
     Dosage: WITH TIOFIBAL 100 ML ONCE A DAY
     Route: 041
     Dates: start: 20200103, end: 20200103

REACTIONS (9)
  - Shock haemorrhagic [Recovering/Resolving]
  - Heart rate increased [Recovering/Resolving]
  - Blood pressure decreased [Recovering/Resolving]
  - Haematemesis [Recovering/Resolving]
  - Nausea [Recovering/Resolving]
  - Gastric ulcer haemorrhage [Recovering/Resolving]
  - Hyperhidrosis [Recovering/Resolving]
  - Abdominal pain upper [Recovering/Resolving]
  - Hypotension [Recovering/Resolving]

NARRATIVE: CASE EVENT DATE: 20200104
